FAERS Safety Report 8444152-5 (Version None)
Quarter: 2012Q2

REPORT INFORMATION
  Report Type: 
  Country: None (occurrence: None)
  Receive Date: 20120618
  Receipt Date: 20120609
  Transmission Date: 20120825
  Serious: Yes (Hospitalization)
  Sender: FDA-Public Use
  Company Number: DE-UCBSA-059394

PATIENT
  Age: 34 Year
  Sex: Male

DRUGS (6)
  1. CARBAMAZEPINE [Suspect]
     Dosage: 1/2 TABLET; TOTAL AMOUNT: 300 MG
     Dates: start: 20120609
  2. VALPROATE SODIUM [Suspect]
     Dosage: UNKNOWN AMOUNT DAILY
     Dates: start: 20120609
  3. CITALOPRAM HYDROBROMIDE [Suspect]
     Dosage: TOTAL AMOUNT: 20 MG
     Dates: start: 20120609
  4. AMITRIPTYLINE HCL [Suspect]
     Dosage: UNKNOWN AMOUNT DAILY
     Dates: start: 20120609
  5. VIMPAT [Suspect]
     Dosage: TOTAL AMOUNT: 100 MG
     Dates: start: 20120609
  6. LEVOTHYROXINE SODIUM [Suspect]
     Dosage: UNKNOWN AMOUNT DAILY
     Dates: start: 20120609

REACTIONS (2)
  - HYPOTHERMIA [None]
  - ACCIDENTAL EXPOSURE [None]
